FAERS Safety Report 7528514-6 (Version None)
Quarter: 2011Q2

REPORT INFORMATION
  Report Type: 
  Country: None (occurrence: None)
  Receive Date: 20110607
  Receipt Date: 20110104
  Transmission Date: 20111010
  Serious: No
  Sender: FDA-Public Use
  Company Number: US-ASTRAZENECA-2011SE03254

PATIENT
  Sex: Female

DRUGS (1)
  1. PRILOSEC OTC [Suspect]
     Indication: DYSPEPSIA
     Route: 048
     Dates: start: 20101220, end: 20101227

REACTIONS (6)
  - DIZZINESS [None]
  - DIARRHOEA [None]
  - NAUSEA [None]
  - ABDOMINAL PAIN UPPER [None]
  - WHEEZING [None]
  - DRUG INEFFECTIVE [None]
